FAERS Safety Report 4646456-0 (Version None)
Quarter: 2005Q2

REPORT INFORMATION
  Report Type: 
  Country: None (occurrence: None)
  Receive Date: 20050427
  Receipt Date: 20040317
  Transmission Date: 20051028
  Serious: No
  Sender: FDA-Public Use
  Company Number: US-GLAXOSMITHKLINE-A0503193A

PATIENT
  Age: 70 Year
  Sex: Female

DRUGS (2)
  1. FLOVENT [Suspect]
     Indication: ASTHMA
     Dosage: 110MCG TWICE PER DAY
     Route: 055
     Dates: start: 20010101, end: 20030901
  2. SEREVENT [Concomitant]

REACTIONS (4)
  - ARTHRALGIA [None]
  - DENTAL CARIES [None]
  - EYELID DISORDER [None]
  - TOOTH LOSS [None]
